FAERS Safety Report 5014570-6 (Version None)
Quarter: 2006Q2

REPORT INFORMATION
  Report Type: 
  Country: None (occurrence: None)
  Receive Date: 20060525
  Receipt Date: 20060512
  Transmission Date: 20061013
  Serious: Yes (Hospitalization)
  Sender: FDA-Public Use
  Company Number: 2006057833

PATIENT
  Age: 54 Year
  Sex: Male
  Weight: 98.8842 kg

DRUGS (9)
  1. BEXTRA [Suspect]
     Indication: ARTHRITIS
     Dosage: 10 MG (10  MG, 1 IN 1 D)
     Dates: start: 20030701
  2. ACETYLSALICYLIC ACID ENTERIC COATED (ACETYLSALICYLIC ACID) [Concomitant]
  3. METFORMIN [Concomitant]
  4. AVAPRO [Concomitant]
  5. VIOXX [Concomitant]
  6. NORVASC [Concomitant]
  7. LIPITOR [Concomitant]
  8. CRESTOR [Concomitant]
  9. ZOCOR [Concomitant]

REACTIONS (3)
  - CEREBELLAR INFARCTION [None]
  - CEREBROVASCULAR ACCIDENT [None]
  - DIABETES MELLITUS [None]
